FAERS Safety Report 17894058 (Version 2)
Quarter: 2020Q2

REPORT INFORMATION
  Report Type: Spontaneous
  Country: JP (occurrence: JP)
  Receive Date: 20200615
  Receipt Date: 20200629
  Transmission Date: 20200714
  Serious: Yes (Hospitalization, Other)
  Sender: FDA-Public Use
  Company Number: JP-009507513-2006JPN000974J

PATIENT
  Age: 68 Year
  Sex: Female

DRUGS (1)
  1. KEYTRUDA [Suspect]
     Active Substance: PEMBROLIZUMAB
     Indication: NON-SMALL CELL LUNG CANCER
     Dosage: 200 MILLIGRAM, Q3W
     Route: 041
     Dates: end: 202002

REACTIONS (3)
  - Decreased appetite [Recovered/Resolved]
  - Diarrhoea [Recovered/Resolved]
  - Lymphoma [Recovered/Resolved]

NARRATIVE: CASE EVENT DATE: 202002
